FAERS Safety Report 13716666 (Version 3)
Quarter: 2017Q3

REPORT INFORMATION
  Report Type: Spontaneous
  Country: DZ (occurrence: DZ)
  Receive Date: 20170705
  Receipt Date: 20170815
  Transmission Date: 20171127
  Serious: Yes (Other)
  Sender: FDA-Public Use
  Company Number: DZ-ELI_LILLY_AND_COMPANY-DZ201706013328

PATIENT
  Age: 50 Year
  Sex: Male
  Weight: 50 kg

DRUGS (4)
  1. PHENERGAN [Concomitant]
     Active Substance: PROMETHAZINE HYDROCHLORIDE
     Indication: PREMEDICATION
     Dosage: UNK
     Dates: start: 20170607
  2. ERBITUX [Suspect]
     Active Substance: CETUXIMAB
     Indication: TONGUE NEOPLASM MALIGNANT STAGE UNSPECIFIED
     Dosage: 250 MG/M2, WEEKLY (1/W)
     Route: 042
     Dates: start: 20170525, end: 20170607
  3. CARBOPLATIN. [Concomitant]
     Active Substance: CARBOPLATIN
     Indication: PREMEDICATION
     Dosage: 5 AUC (MG/ML/MIN)
     Route: 065
     Dates: start: 20170607
  4. SOLU-MEDROL [Concomitant]
     Active Substance: METHYLPREDNISOLONE SODIUM SUCCINATE
     Indication: PREMEDICATION
     Dosage: UNK, UNKNOWN
     Route: 042
     Dates: start: 20170607

REACTIONS (4)
  - Bronchospasm [Recovered/Resolved]
  - Pruritus [Recovered/Resolved]
  - Rash [Recovered/Resolved]
  - Skin reaction [Recovered/Resolved]

NARRATIVE: CASE EVENT DATE: 20170607
